FAERS Safety Report 8335376-6 (Version None)
Quarter: 2012Q2

REPORT INFORMATION
  Report Type: 
  Country: None (occurrence: None)
  Receive Date: 20120503
  Receipt Date: 20120426
  Transmission Date: 20120825
  Serious: Yes (Death, Hospitalization)
  Sender: FDA-Public Use
  Company Number: FR-MERCK-1204FRA00126

PATIENT

DRUGS (3)
  1. PRIMAXIN [Suspect]
     Route: 051
  2. CANCIDAS [Suspect]
     Route: 051
  3. AMPHOTERICIN B AND CHOLESTEROL AND DISTEAROYLPHOSPHATIDYLGLYCEROL AND [Suspect]
     Route: 065

REACTIONS (2)
  - CYTOLYTIC HEPATITIS [None]
  - DEATH [None]
